FAERS Safety Report 9462870 (Version 4)
Quarter: 2014Q1

REPORT INFORMATION
  Report Type: Spontaneous
  Country: JP (occurrence: None)
  Receive Date: 20130814
  Receipt Date: 20140203
  Transmission Date: 20141002
  Serious: Yes (Hospitalization, Other)
  Sender: FDA-Public Use
  Company Number: VAL_02680_2013

PATIENT
  Age: 79 Year
  Sex: Male
  Weight: 73 kg

DRUGS (13)
  1. LOPRESSOR [Suspect]
     Indication: HYPERTENSION
     Route: 048
  2. EQUA [Suspect]
     Indication: TYPE 2 DIABETES MELLITUS
     Dosage: ( IN 2 DIVIDED DOSES)
     Route: 048
     Dates: start: 201208
  3. ASPIRIN [Suspect]
     Indication: ANGINA PECTORIS
     Route: 048
  4. PARIET [Concomitant]
  5. CARDENALIN [Concomitant]
  6. ALOSITOL [Concomitant]
  7. HARNAL [Concomitant]
  8. MEVALOTIN [Concomitant]
  9. NU-LOTAN [Concomitant]
  10. LASIX /00032601/ [Concomitant]
  11. BIOFERMIN /07958301/ [Concomitant]
  12. BAYASPIRIN [Concomitant]
  13. ANTIHYPERTENSIVES [Concomitant]

REACTIONS (5)
  - Hypoglycaemia [None]
  - Altered state of consciousness [None]
  - Asthenia [None]
  - Blood pressure systolic increased [None]
  - Hypoglycaemic coma [None]
